FAERS Safety Report 5414567-8 (Version None)
Quarter: 2007Q3

REPORT INFORMATION
  Report Type: 
  Country: None (occurrence: None)
  Receive Date: 20070731
  Receipt Date: 20070618
  Transmission Date: 20080115
  Serious: No
  Sender: FDA-Public Use
  Company Number: 2006PV025194

PATIENT
  Age: 74 Year
  Sex: Male

DRUGS (6)
  1. EXENATIDE (EXENATIDE) PEN,DISPOSABLE [Suspect]
     Indication: TYPE 2 DIABETES MELLITUS
     Dosage: 10 UG, 2/D, SUBCUTANEOUS, 5 UG, 2/D, SUBCUTANEOUS
     Route: 058
     Dates: start: 20061001, end: 20061001
  2. EXENATIDE (EXENATIDE) PEN,DISPOSABLE [Suspect]
     Indication: TYPE 2 DIABETES MELLITUS
     Dosage: 10 UG, 2/D, SUBCUTANEOUS, 5 UG, 2/D, SUBCUTANEOUS
     Route: 058
     Dates: start: 20061001
  3. LANTUS [Concomitant]
  4. UNKNOWN PILL (EXCEPT TABLETS) [Concomitant]
  5. DRUG USED IN DIABETES [Concomitant]
  6. INSULIN [Concomitant]

REACTIONS (7)
  - ABDOMINAL DISTENSION [None]
  - ABDOMINAL PAIN UPPER [None]
  - BACK INJURY [None]
  - BLOOD GLUCOSE INCREASED [None]
  - FATIGUE [None]
  - SOMNOLENCE [None]
  - VOMITING [None]
